FAERS Safety Report 13688651 (Version 1)
Quarter: 2017Q2

REPORT INFORMATION
  Report Type: Spontaneous
  Country: US (occurrence: US)
  Receive Date: 20170623
  Receipt Date: 20170623
  Transmission Date: 20170830
  Serious: Yes (Life-Threatening, Hospitalization, Disabling, Other)
  Sender: FDA-Public Use
  Company Number: None

PATIENT
  Age: 61 Year
  Sex: Female
  Weight: 67.5 kg

DRUGS (10)
  1. EUCERIN [Concomitant]
     Active Substance: ENSULIZOLE\EUCERIN\OCTINOXATE\OCTISALATE\TITANIUM DIOXIDE\ZINC OXIDE
  2. FLUCOSONE EAR DROPS [Concomitant]
  3. AQUAPHOR [Concomitant]
     Active Substance: PETROLATUM
  4. MULTIPLE EYE DROPS [Concomitant]
  5. LAMICTAL [Suspect]
     Active Substance: LAMOTRIGINE
     Indication: PARTIAL SEIZURES
     Route: 048
     Dates: start: 20150120, end: 20150206
  6. SERUM TEARS [Concomitant]
  7. TOPICORT OINTMENT [Concomitant]
  8. PROSE SCLERAL LENS [Concomitant]
  9. VANIQUA CREAM [Concomitant]
  10. VALTREX [Concomitant]
     Active Substance: VALACYCLOVIR HYDROCHLORIDE

REACTIONS (3)
  - Toxic epidermal necrolysis [None]
  - Drug hypersensitivity [None]
  - Dry eye [None]

NARRATIVE: CASE EVENT DATE: 20150206
